FAERS Safety Report 10015335 (Version 3)
Quarter: 2014Q2

REPORT INFORMATION
  Report Type: Report from Study
  Country: US (occurrence: US)
  Receive Date: 20140317
  Receipt Date: 20140602
  Transmission Date: 20141212
  Serious: Yes (Hospitalization, Other)
  Sender: FDA-Public Use
  Company Number: US-ABBVIE-14P-163-1211128-00

PATIENT
  Age: 62 Year
  Sex: Female
  Weight: 108.96 kg

DRUGS (11)
  1. HUMIRA [Suspect]
     Indication: RHEUMATOID ARTHRITIS
     Route: 058
     Dates: start: 20131212, end: 20140303
  2. GABAPENTIN [Concomitant]
     Indication: PRODUCT USED FOR UNKNOWN INDICATION
  3. AMITRIPTYLINE [Concomitant]
     Indication: PRODUCT USED FOR UNKNOWN INDICATION
     Dosage: AT BEDTIME
  4. METHOTREXATE [Concomitant]
     Indication: PRODUCT USED FOR UNKNOWN INDICATION
     Dosage: USE AS DIRECTED, 6 TABLETS WEEKLY
  5. AMLODIPINE BESYLATE [Concomitant]
     Indication: PRODUCT USED FOR UNKNOWN INDICATION
     Dosage: AT BEDTIME
  6. LEVOTHYROXINE SODIUM [Concomitant]
     Indication: PRODUCT USED FOR UNKNOWN INDICATION
  7. LISINOPRIL-HYDROCHLOROTHIAZIDE [Concomitant]
     Indication: PRODUCT USED FOR UNKNOWN INDICATION
     Dosage: 20-25 MG TABS
  8. PROCRIT [Concomitant]
     Indication: PRODUCT USED FOR UNKNOWN INDICATION
     Dosage: 20000 UNIT/ML SOLN
  9. MULTI-VITAMIN/IRON [Concomitant]
     Indication: PRODUCT USED FOR UNKNOWN INDICATION
  10. OMEPRAZOLE [Concomitant]
     Indication: PRODUCT USED FOR UNKNOWN INDICATION
     Dosage: CPDR
  11. SERTRALINE HCL [Concomitant]
     Indication: PRODUCT USED FOR UNKNOWN INDICATION

REACTIONS (9)
  - Haemoglobin decreased [Not Recovered/Not Resolved]
  - Colon cancer [Recovering/Resolving]
  - Localised infection [Recovered/Resolved]
  - Pharyngitis streptococcal [Recovered/Resolved]
  - Anaemia [Unknown]
  - Renal failure [Unknown]
  - Gastritis [Unknown]
  - Reticulocyte count increased [Unknown]
  - Haemorrhage [Unknown]
